FAERS Safety Report 7239347-2 (Version None)
Quarter: 2011Q1

REPORT INFORMATION
  Report Type: 
  Country: None (occurrence: None)
  Receive Date: 20110121
  Receipt Date: 20110112
  Transmission Date: 20110831
  Serious: Yes (Death, Hospitalization)
  Sender: FDA-Public Use
  Company Number: DE-CELGENEUS-062-50794-10122471

PATIENT
  Age: 74 Year
  Sex: Male
  Weight: 70 kg

DRUGS (2)
  1. VIDAZA [Suspect]
     Route: 058
     Dates: start: 20101129, end: 20101207
  2. CEFUROXIME [Concomitant]
     Route: 048
     Dates: start: 20101206, end: 20101212

REACTIONS (2)
  - DISEASE PROGRESSION [None]
  - LEUKOCYTOSIS [None]
